FAERS Safety Report 5025174-3 (Version None)
Quarter: 2006Q2

REPORT INFORMATION
  Report Type: 
  Country: None (occurrence: None)
  Receive Date: 20060613
  Receipt Date: 20060607
  Transmission Date: 20061013
  Serious: Yes (Hospitalization, Other)
  Sender: FDA-Public Use
  Company Number: BR-GLAXOSMITHKLINE-A0608540A

PATIENT
  Age: 3 Year
  Sex: Female

DRUGS (1)
  1. AMOXIL [Suspect]
     Indication: OVERDOSE
     Route: 065
     Dates: start: 20060607, end: 20060607

REACTIONS (2)
  - ARRHYTHMIA [None]
  - OVERDOSE [None]
